FAERS Safety Report 16246240 (Version 3)
Quarter: 2019Q3

REPORT INFORMATION
  Report Type: Report from Study
  Country: US (occurrence: US)
  Receive Date: 20190426
  Receipt Date: 20190814
  Transmission Date: 20191004
  Serious: Yes (Hospitalization)
  Sender: FDA-Public Use
  Company Number: US-BIOGEN-2019BI00729063

PATIENT
  Sex: Female

DRUGS (3)
  1. TYSABRI [Suspect]
     Active Substance: NATALIZUMAB
     Indication: MULTIPLE SCLEROSIS
     Dosage: INFUSE OVER 1 HR
     Route: 065
     Dates: start: 20190123
  2. XARELTO [Concomitant]
     Active Substance: RIVAROXABAN
     Indication: THROMBOSIS
     Route: 065
  3. TYSABRI [Suspect]
     Active Substance: NATALIZUMAB
     Dosage: INFUSE OVER 1 HR
     Route: 042
     Dates: start: 201902

REACTIONS (3)
  - Asthma [Not Recovered/Not Resolved]
  - Respiratory disorder [Unknown]
  - Chronic obstructive pulmonary disease [Not Recovered/Not Resolved]

NARRATIVE: CASE EVENT DATE: 2019
